FAERS Safety Report 5012274-7 (Version None)
Quarter: 2006Q2

REPORT INFORMATION
  Report Type: 
  Country: None (occurrence: None)
  Receive Date: 20060526
  Receipt Date: 20060322
  Transmission Date: 20061013
  Serious: Yes (Hospitalization)
  Sender: FDA-Public Use
  Company Number: JP-ABBOTT-06P-087-0328851-00

PATIENT
  Sex: Female
  Weight: 50 kg

DRUGS (8)
  1. KLARICID [Suspect]
     Indication: HELICOBACTER INFECTION
     Route: 048
     Dates: start: 20050614, end: 20050621
  2. TAKEPRON CAPSULES [Suspect]
     Indication: HELICOBACTER INFECTION
     Route: 048
     Dates: start: 20050614, end: 20050621
  3. AMOXICILLIN TRIHYDRATE [Suspect]
     Indication: HELICOBACTER INFECTION
     Route: 048
     Dates: start: 20050614, end: 20050621
  4. METHYLPREDNISOLONE [Suspect]
     Indication: DRUG ERUPTION
     Route: 042
     Dates: start: 20050624, end: 20050626
  5. PREDNISOLONE [Suspect]
     Indication: DRUG ERUPTION
     Route: 048
     Dates: start: 20050627, end: 20050629
  6. PREDNISOLONE [Suspect]
     Route: 048
     Dates: start: 20050630, end: 20050704
  7. PREDNISOLONE [Suspect]
     Route: 048
     Dates: start: 20050705, end: 20050711
  8. PREDNISOLONE [Suspect]
     Route: 048
     Dates: start: 20050712, end: 20050715

REACTIONS (3)
  - DERMATITIS EXFOLIATIVE [None]
  - DRUG ERUPTION [None]
  - WHITE BLOOD CELL COUNT INCREASED [None]
